FAERS Safety Report 7154711-8 (Version None)
Quarter: 2010Q4

REPORT INFORMATION
  Report Type: 
  Country: None (occurrence: None)
  Receive Date: 20101214
  Receipt Date: 20091106
  Transmission Date: 20110411
  Serious: No
  Sender: FDA-Public Use
  Company Number: US-AMGEN-KDL373385

PATIENT

DRUGS (5)
  1. ENBREL [Suspect]
     Indication: PRODUCT USED FOR UNKNOWN INDICATION
     Dosage: 50 MG, 2 TIMES/WK
     Route: 058
  2. ATORVASTATIN CALCIUM [Concomitant]
     Dosage: 10 MG, UNK
  3. FENOFIBRATE [Concomitant]
     Dosage: 48 MG, UNK
  4. LISINOPRIL [Concomitant]
     Dosage: 10 MG, UNK
  5. ALLOPURINOL [Concomitant]
     Dosage: 100 MG, UNK

REACTIONS (2)
  - COUGH [None]
  - NEPHROLITHIASIS [None]
